FAERS Safety Report 5911706-7 (Version None)
Quarter: 2008Q4

REPORT INFORMATION
  Report Type: 
  Country: None (occurrence: None)
  Receive Date: 20081003
  Receipt Date: 20080917
  Transmission Date: 20090506
  Serious: Yes (Hospitalization, Other)
  Sender: FDA-Public Use
  Company Number: 2008EU001817

PATIENT
  Age: 42 Year
  Sex: Male
  Weight: 59 kg

DRUGS (6)
  1. PROGRAF [Suspect]
     Indication: RENAL TRANSPLANT
     Dosage: 8 MG, UID/QD, ORAL
     Route: 048
  2. CELLCEPT [Concomitant]
  3. SOLU-MEDROL [Concomitant]
  4. PREDNISONE TAB [Concomitant]
  5. BACTRIM (GUAIFENESIN, SULFAMETHOXAZOLE) [Concomitant]
  6. LEDERFOLINE (CALCIUM FOLINATE) [Concomitant]

REACTIONS (5)
  - ENCEPHALOPATHY [None]
  - FATIGUE [None]
  - HEADACHE [None]
  - IMMUNOSUPPRESSANT DRUG LEVEL INCREASED [None]
  - PHOTOPHOBIA [None]
